FAERS Safety Report 7420788-5 (Version None)
Quarter: 2011Q2

REPORT INFORMATION
  Report Type: 
  Country: None (occurrence: None)
  Receive Date: 20110418
  Receipt Date: 20110408
  Transmission Date: 20111010
  Serious: Yes (Hospitalization)
  Sender: FDA-Public Use
  Company Number: FR-ROCHE-764815

PATIENT
  Sex: Female

DRUGS (9)
  1. ROACTEMRA [Suspect]
     Dosage: FOURTH INFUSION
     Route: 065
     Dates: start: 20100914
  2. ROACTEMRA [Suspect]
     Route: 065
     Dates: start: 20110202
  3. ROACTEMRA [Suspect]
     Dosage: THIRD  INFUSION
     Route: 065
     Dates: start: 20100812
  4. ROACTEMRA [Suspect]
     Dosage: SEVENTH INFUSION. HALF DOSE
     Route: 065
     Dates: start: 20101213
  5. ROACTEMRA [Suspect]
     Dosage: SECOND INFUSION
     Route: 065
     Dates: start: 20100710
  6. ROACTEMRA [Suspect]
     Dosage: SIXTH INFUSION
     Route: 065
     Dates: start: 20101109
  7. ROACTEMRA [Suspect]
     Indication: RHEUMATOID ARTHRITIS
     Dosage: FORM: INFUSION. 1ST  INFUSION
     Route: 065
     Dates: start: 20100611
  8. ROACTEMRA [Suspect]
     Dosage: EIGHTH INFUSION
     Route: 065
     Dates: start: 20110106
  9. ROACTEMRA [Suspect]
     Dosage: FIFTH INFUSION
     Route: 065
     Dates: start: 20101012

REACTIONS (6)
  - CYTOLYTIC HEPATITIS [None]
  - HEPATIC CIRRHOSIS [None]
  - THROMBOCYTOPENIA [None]
  - HYPERCHOLESTEROLAEMIA [None]
  - HYPERLIPIDAEMIA [None]
  - HEPATIC ENZYME INCREASED [None]
